FAERS Safety Report 9493229 (Version 3)
Quarter: 2013Q4

REPORT INFORMATION
  Report Type: Report from Study
  Country: JP (occurrence: JP)
  Receive Date: 20130902
  Receipt Date: 20131119
  Transmission Date: 20140711
  Serious: Yes (Other)
  Sender: FDA-Public Use
  Company Number: PHHY2012JP117970

PATIENT
  Age: 58 Year
  Sex: Male

DRUGS (33)
  1. LEPONEX / CLOZARIL [Suspect]
     Indication: SCHIZOPHRENIA, PARANOID TYPE
     Dosage: 12.5 MG, DAILY
     Route: 048
     Dates: start: 20121003, end: 20121003
  2. LEPONEX / CLOZARIL [Suspect]
     Dosage: 25 MG, UNK
     Route: 048
     Dates: start: 20121004, end: 20121006
  3. LEPONEX / CLOZARIL [Suspect]
     Dosage: 50 MG, DAILY
     Route: 048
     Dates: start: 20121007, end: 20121009
  4. LEPONEX / CLOZARIL [Suspect]
     Dosage: 75 MG, DAILY
     Route: 048
     Dates: start: 20121010, end: 20121011
  5. LEPONEX / CLOZARIL [Suspect]
     Dosage: 100 MG, DAILY
     Route: 048
     Dates: start: 20121012, end: 20121013
  6. LEPONEX / CLOZARIL [Suspect]
     Dosage: 125 MG, DAILY
     Route: 048
     Dates: start: 20121014, end: 20121023
  7. LEPONEX / CLOZARIL [Suspect]
     Dosage: 150 MG, DAILY
     Route: 048
     Dates: start: 20121024, end: 20121026
  8. LEPONEX / CLOZARIL [Suspect]
     Dosage: 175 MG, DAILY
     Route: 048
     Dates: start: 20121027, end: 20121029
  9. LEPONEX / CLOZARIL [Suspect]
     Dosage: 200 MG, DAILY
     Route: 048
     Dates: start: 20121030, end: 20121106
  10. LEPONEX / CLOZARIL [Suspect]
     Dosage: 250 MG, DAILY
     Route: 048
     Dates: start: 20121107, end: 20121211
  11. LEPONEX / CLOZARIL [Suspect]
     Dosage: 225 MG, DAILY
     Route: 048
     Dates: start: 20121212, end: 20121217
  12. LEPONEX / CLOZARIL [Suspect]
     Dosage: 12.5 MG, DAILY
     Route: 048
     Dates: start: 20121220, end: 20121220
  13. LEPONEX / CLOZARIL [Suspect]
     Dosage: 25 MG, DAILY
     Route: 048
     Dates: start: 20121221, end: 20121223
  14. LEPONEX / CLOZARIL [Suspect]
     Dosage: 50 MG, DAILY
     Route: 048
     Dates: start: 20121224, end: 20121226
  15. LEPONEX / CLOZARIL [Suspect]
     Dosage: 75 MG, DAILY
     Route: 048
     Dates: start: 20121227
  16. SELENICA R [Concomitant]
     Indication: SCHIZOPHRENIA, PARANOID TYPE
     Dosage: 800 MG, UNK
     Route: 048
  17. MAGMITT [Concomitant]
     Dosage: 1320 MG, UNK
     Route: 048
  18. FLUNITRAZEPAM [Concomitant]
     Dosage: 2 MG, UNK
     Route: 048
  19. BENZALIN [Concomitant]
     Dosage: 10 MG, UNK
     Route: 048
  20. SODIUM VALPROATE [Concomitant]
     Dosage: 200 MG, UNK
     Route: 048
     Dates: end: 20121212
  21. THYRADIN [Concomitant]
     Dosage: 25 UG, UNK
     Route: 048
  22. TASMOLIN [Concomitant]
     Indication: SCHIZOPHRENIA, PARANOID TYPE
     Dosage: 6 MG, UNK
     Route: 048
  23. RIVOTRIL [Concomitant]
     Dosage: 1.5 MG, UNK
     Route: 048
     Dates: end: 20121017
  24. LIMAS [Concomitant]
     Dosage: 400 MG, UNK
     Route: 048
     Dates: start: 20121016
  25. LIMAS [Concomitant]
     Dosage: 600 MG, UNK
     Route: 048
  26. LIMAS [Concomitant]
     Dosage: 800 MG, UNK
     Route: 048
     Dates: end: 20121114
  27. LEUCON [Concomitant]
     Dosage: 40 MG, UNK
     Route: 048
     Dates: start: 20121115
  28. FERO-GRADUMET [Concomitant]
     Dosage: 105 MG, UNK
     Route: 048
     Dates: start: 20121227
  29. URSO [Concomitant]
     Dosage: 300 MG, UNK
     Route: 048
     Dates: start: 20121220, end: 20121231
  30. PIARLE [Concomitant]
     Dosage: 60 ML, UNK
     Route: 048
     Dates: start: 20121220
  31. DAIKENCHUTO [Concomitant]
     Dosage: 7.5 G, UNK
     Route: 048
     Dates: start: 20121220
  32. SULTIMIN [Concomitant]
     Dosage: 5 MG, UNK
     Route: 048
     Dates: start: 20121220
  33. LANSOPRAZOLE-OD [Concomitant]
     Dosage: 15 MG, UNK
     Route: 048
     Dates: start: 20121220

REACTIONS (3)
  - Ileus [Recovering/Resolving]
  - Vomiting [Not Recovered/Not Resolved]
  - Blood pressure systolic decreased [Not Recovered/Not Resolved]
